FAERS Safety Report 4500479-0 (Version None)
Quarter: 2004Q3

REPORT INFORMATION
  Report Type: 
  Country: None (occurrence: None)
  Receive Date: 20040928
  Receipt Date: 20040806
  Transmission Date: 20050211
  Serious: No
  Sender: FDA-Public Use
  Company Number: 04P-163-0269538-00

PATIENT
  Age: 78 Year
  Sex: Female
  Weight: 66.2252 kg

DRUGS (8)
  1. HUMIRA [Suspect]
     Indication: RHEUMATOID ARTHRITIS
     Dosage: 40 MG, 1 IN 2WK, SUBCUTANEOUS
     Route: 058
     Dates: start: 20040301, end: 20040701
  2. PREDNISONE [Concomitant]
  3. RISEDRONATE SODIUIM [Concomitant]
  4. ACTOSE [Concomitant]
  5. ESTRADIOL [Concomitant]
  6. PROVENTIL [Concomitant]
  7. ADVAIR [Concomitant]
  8. RANITIDINE [Concomitant]

REACTIONS (2)
  - INJECTION SITE PRURITUS [None]
  - RASH [None]
